FAERS Safety Report 15850308 (Version 1)
Quarter: 2019Q1

REPORT INFORMATION
  Report Type: Spontaneous
  Country: US (occurrence: US)
  Receive Date: 20190121
  Receipt Date: 20190121
  Transmission Date: 20190417
  Serious: No
  Sender: FDA-Public Use
  Company Number: US-PFIZER INC-2019018052

PATIENT
  Sex: Female

DRUGS (1)
  1. QUELICIN [Suspect]
     Active Substance: SUCCINYLCHOLINE CHLORIDE
     Dosage: 100 MG, UNK

REACTIONS (1)
  - Drug effect incomplete [Unknown]
